FAERS Safety Report 4272929-9 (Version None)
Quarter: 2004Q1

REPORT INFORMATION
  Report Type: 
  Country: None (occurrence: None)
  Receive Date: 20040114
  Receipt Date: 20040109
  Transmission Date: 20041129
  Serious: Yes (Hospitalization)
  Sender: FDA-Public Use
  Company Number: 2004193558FR

PATIENT
  Age: 69 Year
  Sex: Male

DRUGS (1)
  1. VANTIN [Suspect]
     Indication: COUGH
     Dosage: 200 MG, DAILY, ORAL
     Route: 048
     Dates: start: 20030901, end: 20030906

REACTIONS (1)
  - LICHEN PLANUS [None]
